FAERS Safety Report 9819184 (Version 2)
Quarter: 2014Q1

REPORT INFORMATION
  Report Type: Spontaneous
  Country: FR (occurrence: FR)
  Receive Date: 20140115
  Receipt Date: 20140122
  Transmission Date: 20141002
  Serious: Yes (Disabling, Other)
  Sender: FDA-Public Use
  Company Number: FR-TEVA-456107ISR

PATIENT
  Age: 40 Year
  Sex: Male

DRUGS (2)
  1. COPAXONE [Suspect]
     Indication: RELAPSING-REMITTING MULTIPLE SCLEROSIS
     Route: 058
     Dates: start: 20131105
  2. CHAMPIX [Concomitant]
     Indication: NICOTINE DEPENDENCE

REACTIONS (4)
  - Multiple sclerosis relapse [Not Recovered/Not Resolved]
  - Optic nerve injury [Unknown]
  - Vision blurred [Unknown]
  - Eye movement disorder [Unknown]
